FAERS Safety Report 9527224 (Version 2)
Quarter: 2013Q4

REPORT INFORMATION
  Report Type: Spontaneous
  Country: ES (occurrence: ES)
  Receive Date: 20130917
  Receipt Date: 20131015
  Transmission Date: 20140711
  Serious: Yes (Hospitalization)
  Sender: FDA-Public Use
  Company Number: ES-AMGEN-ESPSP2013064821

PATIENT
  Age: 42 Year
  Sex: Male
  Weight: 97 kg

DRUGS (1)
  1. ENBREL [Suspect]
     Indication: PSORIASIS
     Dosage: 50 UNK, UNK
     Route: 065
     Dates: start: 20101130

REACTIONS (1)
  - Diverticulitis [Recovered/Resolved]
